FAERS Safety Report 7352169-7 (Version None)
Quarter: 2011Q1

REPORT INFORMATION
  Report Type: 
  Country: None (occurrence: None)
  Receive Date: 20110315
  Receipt Date: 20100914
  Transmission Date: 20110831
  Serious: Yes (Hospitalization)
  Sender: FDA-Public Use
  Company Number: US-BAYER-201018960NA

PATIENT
  Sex: Female
  Weight: 81.633 kg

DRUGS (1)
  1. YAZ [Suspect]
     Indication: CONTRACEPTION
     Dosage: 1 DF, QD
     Route: 048
     Dates: start: 20081224, end: 20090210

REACTIONS (5)
  - HEMIPARESIS [None]
  - CEREBROVASCULAR ACCIDENT [None]
  - FACIAL PARESIS [None]
  - DYSARTHRIA [None]
  - CONFUSIONAL STATE [None]
